FAERS Safety Report 26157148 (Version 2)
Quarter: 2025Q4

REPORT INFORMATION
  Report Type: Spontaneous
  Country: JP (occurrence: JP)
  Receive Date: 20251215
  Receipt Date: 20251217
  Transmission Date: 20260118
  Serious: Yes (Other)
  Sender: ELI LILLY AND COMPANY
  Company Number: JP-ELI_LILLY_AND_COMPANY-JP202512012756

PATIENT
  Age: 80 Year
  Sex: Female

DRUGS (9)
  1. KISUNLA [Suspect]
     Active Substance: DONANEMAB-AZBT
     Indication: Dementia Alzheimer^s type
     Dosage: UNK
     Route: 065
     Dates: start: 20251121
  2. ROSUVASTATIN [Concomitant]
     Active Substance: ROSUVASTATIN
  3. TRICHLORMETHIAZIDE [Concomitant]
     Active Substance: TRICHLORMETHIAZIDE
  4. RABEPRAZOLE SODIUM [Concomitant]
     Active Substance: RABEPRAZOLE SODIUM
  5. ETIZOLAM [Concomitant]
     Active Substance: ETIZOLAM
  6. DAYVIGO [Concomitant]
     Active Substance: LEMBOREXANT
  7. ENALAPRIL [Concomitant]
     Active Substance: ENALAPRIL
  8. AZELNIDIPINE [Concomitant]
     Active Substance: AZELNIDIPINE
  9. BISOPROLOL [Concomitant]
     Active Substance: BISOPROLOL

REACTIONS (1)
  - Cerebral infarction [Recovering/Resolving]

NARRATIVE: CASE EVENT DATE: 20251206
